FAERS Safety Report 24566076 (Version 1)
Quarter: 2024Q4

REPORT INFORMATION
  Report Type: Spontaneous
  Country: US (occurrence: None)
  Receive Date: 20241029
  Receipt Date: 20241029
  Transmission Date: 20250115
  Serious: Yes (Hospitalization)
  Sender: Public
  Company Number: None

PATIENT
  Age: 74 Year
  Sex: Male
  Weight: 97 kg

DRUGS (5)
  1. EMPAGLIFLOZIN [Suspect]
     Active Substance: EMPAGLIFLOZIN
     Indication: Diabetes mellitus
     Dosage: FREQUENCY : DAILY;?
     Route: 048
     Dates: start: 20240515, end: 20240521
  2. POTASSIUM CHLORIDE [Suspect]
     Active Substance: POTASSIUM CHLORIDE
  3. SPIKEVAX (ELASOMERAN) [Suspect]
     Active Substance: ELASOMERAN
  4. METFORMIN [Suspect]
     Active Substance: METFORMIN HYDROCHLORIDE
  5. PRAVASTATIN [Suspect]
     Active Substance: PRAVASTATIN

REACTIONS (12)
  - Headache [None]
  - Pain [None]
  - Confusional state [None]
  - Asthenia [None]
  - Dizziness [None]
  - Fatigue [None]
  - Decreased appetite [None]
  - Weight decreased [None]
  - Euglycaemic diabetic ketoacidosis [None]
  - Therapy cessation [None]
  - Dizziness [None]
  - Renal impairment [None]

NARRATIVE: CASE EVENT DATE: 20240521
